FAERS Safety Report 6905959-6 (Version None)
Quarter: 2010Q3

REPORT INFORMATION
  Report Type: 
  Country: None (occurrence: None)
  Receive Date: 20100804
  Receipt Date: 20100723
  Transmission Date: 20110219
  Serious: Yes (Other)
  Sender: FDA-Public Use
  Company Number: US-ELI_LILLY_AND_COMPANY-US201007007146

PATIENT
  Sex: Female

DRUGS (1)
  1. FORTEO [Suspect]
     Dates: start: 20100319

REACTIONS (3)
  - BLOOD URINE PRESENT [None]
  - SPINAL FRACTURE [None]
  - UPPER RESPIRATORY TRACT INFECTION [None]
